FAERS Safety Report 4486384-7 (Version None)
Quarter: 2004Q4

REPORT INFORMATION
  Report Type: 
  Country: None (occurrence: None)
  Receive Date: 20041026
  Receipt Date: 20041026
  Transmission Date: 20050328
  Serious: Yes (Hospitalization)
  Sender: FDA-Public Use
  Company Number: None

PATIENT
  Age: 82 Year
  Sex: Male
  Weight: 60 kg

DRUGS (4)
  1. PACLITAXEL [Suspect]
     Indication: NON-SMALL CELL LUNG CANCER
     Dosage: 50MG/M2   WEEKLY   INTRAVENOU
     Route: 042
     Dates: start: 20040820, end: 20040903
  2. CARBOPLATIN [Suspect]
     Indication: NON-SMALL CELL LUNG CANCER
     Dosage: AUC 2   WEEKLY   INTRAVENOU
     Route: 042
     Dates: start: 20040820, end: 20040903
  3. VITAMINC C [Concomitant]
  4. ASPIRIN [Concomitant]

REACTIONS (1)
  - DEEP VEIN THROMBOSIS [None]
